FAERS Safety Report 4510270-7 (Version None)
Quarter: 2004Q4

REPORT INFORMATION
  Report Type: 
  Country: None (occurrence: None)
  Receive Date: 20041124
  Receipt Date: 20030605
  Transmission Date: 20050328
  Serious: Yes (Hospitalization, Disabling)
  Sender: FDA-Public Use
  Company Number: US-MERCK-0306USA00883

PATIENT
  Age: 67 Year
  Sex: Female

DRUGS (5)
  1. VIOXX [Suspect]
     Indication: ARTHRITIS
     Route: 048
     Dates: start: 19990810, end: 20000101
  2. VIOXX [Suspect]
     Indication: PAIN IN EXTREMITY
     Route: 048
     Dates: start: 19990810, end: 20000101
  3. SPIRONOLACTONE [Concomitant]
     Route: 065
  4. CAPTOPRIL MSD [Concomitant]
     Route: 048
  5. TOPROL-XL [Concomitant]
     Route: 048

REACTIONS (79)
  - ABDOMINAL PAIN [None]
  - ADVERSE EVENT [None]
  - AMNESIA [None]
  - ANGINA PECTORIS [None]
  - ARTHRALGIA [None]
  - ARTHROPATHY [None]
  - AUTONOMIC NERVOUS SYSTEM IMBALANCE [None]
  - BENIGN COLONIC POLYP [None]
  - BLISTER INFECTED [None]
  - BLOOD PRESSURE INCREASED [None]
  - BODY TEMPERATURE INCREASED [None]
  - BREAST CANCER IN SITU [None]
  - BREAST FIBROSIS [None]
  - BREAST MICROCALCIFICATION [None]
  - BREAST PAIN [None]
  - BRONCHITIS [None]
  - BURSITIS [None]
  - CAROTID ARTERY STENOSIS [None]
  - CATARACT [None]
  - CEREBRAL ISCHAEMIA [None]
  - CHEST DISCOMFORT [None]
  - CHEST PAIN [None]
  - CONFUSIONAL STATE [None]
  - CONGENITAL EYE NAEVUS [None]
  - CONTUSION [None]
  - CONVULSION [None]
  - COUGH [None]
  - DIAPHRAGMATIC DISORDER [None]
  - DISORIENTATION [None]
  - DIVERTICULUM [None]
  - DYSLIPIDAEMIA [None]
  - DYSPNOEA EXERTIONAL [None]
  - ENDOLYMPHATIC HYDROPS [None]
  - EXOSTOSIS [None]
  - FACIAL PAIN [None]
  - FATIGUE [None]
  - FEELING ABNORMAL [None]
  - FLATULENCE [None]
  - HAEMANGIOMA [None]
  - HAEMORRHOIDS [None]
  - HOT FLUSH [None]
  - HYPERHIDROSIS [None]
  - HYPERTENSION [None]
  - HYPERTENSIVE ENCEPHALOPATHY [None]
  - INFLAMMATION [None]
  - INFUSION RELATED REACTION [None]
  - INJURY [None]
  - INTERMITTENT CLAUDICATION [None]
  - LIMB DISCOMFORT [None]
  - LIMB INJURY [None]
  - LOSS OF CONSCIOUSNESS [None]
  - LUNG DISORDER [None]
  - MYOCARDIAL ISCHAEMIA [None]
  - NAUSEA [None]
  - NEOPLASM RECURRENCE [None]
  - NUCLEAR MAGNETIC RESONANCE IMAGING BRAIN ABNORMAL [None]
  - OSTEOARTHRITIS [None]
  - OSTEOPOROSIS [None]
  - PAIN IN EXTREMITY [None]
  - PALATAL DISORDER [None]
  - PALPITATIONS [None]
  - PLANTAR FASCIITIS [None]
  - PULMONARY FIBROSIS [None]
  - RASH [None]
  - REFUSAL OF TREATMENT BY PATIENT [None]
  - RHINITIS [None]
  - ROTATOR CUFF SYNDROME [None]
  - SCOTOMA [None]
  - SEASONAL ALLERGY [None]
  - SENSATION OF PRESSURE IN EAR [None]
  - SEROMA [None]
  - SINUSITIS [None]
  - SUPRAVENTRICULAR TACHYCARDIA [None]
  - SYNCOPE [None]
  - TENDONITIS [None]
  - TRANSIENT ISCHAEMIC ATTACK [None]
  - VERTEBROBASILAR INSUFFICIENCY [None]
  - VISUAL DISTURBANCE [None]
  - VITREOUS DETACHMENT [None]
